FAERS Safety Report 17617906 (Version 1)
Quarter: 2020Q2

REPORT INFORMATION
  Report Type: Spontaneous
  Country: US (occurrence: US)
  Receive Date: 20200402
  Receipt Date: 20200402
  Transmission Date: 20200713
  Serious: No
  Sender: FDA-Public Use
  Company Number: US-ROCHE-2289720

PATIENT
  Sex: Female

DRUGS (2)
  1. ERIVEDGE [Suspect]
     Active Substance: VISMODEGIB
     Indication: BASAL CELL CARCINOMA
     Dosage: 150 MG PILL
     Route: 048
     Dates: start: 201809
  2. QUETIAPINE FUMARATE. [Concomitant]
     Active Substance: QUETIAPINE FUMARATE
     Dosage: TWO TABLETS AT BED TIME OR ONE DAILY AS NEEDED
     Route: 065

REACTIONS (2)
  - Alopecia [Unknown]
  - Red blood cell count decreased [Unknown]
